FAERS Safety Report 8418815-1 (Version None)
Quarter: 2012Q2

REPORT INFORMATION
  Report Type: 
  Country: None (occurrence: None)
  Receive Date: 20120607
  Receipt Date: 20120601
  Transmission Date: 20120825
  Serious: Yes (Death, Hospitalization)
  Sender: FDA-Public Use
  Company Number: FR-PFIZER INC-2007083007

PATIENT
  Age: 57 Year
  Sex: Male
  Weight: 41 kg

DRUGS (4)
  1. FLUOROURACIL [Suspect]
     Indication: GASTRIC CANCER
     Dosage: UNK
     Route: 042
     Dates: start: 20060124, end: 20060322
  2. EPIRUBICIN HYDROCHLORIDE [Suspect]
     Indication: GASTRIC CANCER
     Dosage: UNK
     Route: 042
     Dates: start: 20060301, end: 20060322
  3. CISPLATIN [Suspect]
     Indication: GASTRIC CANCER
     Dosage: UNK
     Route: 042
  4. NEULASTA [Suspect]
     Indication: GASTRIC CANCER
     Dosage: 6 MG, UNK
     Route: 058
     Dates: start: 20060124, end: 20060322

REACTIONS (5)
  - DISEASE PROGRESSION [None]
  - GASTRIC CANCER [None]
  - NEUTROPENIA [None]
  - THROMBOCYTOPENIA [None]
  - FEBRILE BONE MARROW APLASIA [None]
